FAERS Safety Report 13895939 (Version 1)
Quarter: 2017Q3

REPORT INFORMATION
  Report Type: Spontaneous
  Country: US (occurrence: None)
  Receive Date: 20170814
  Receipt Date: 20170814
  Transmission Date: 20171127
  Serious: Yes (Hospitalization)
  Sender: FDA-Public Use
  Company Number: None

PATIENT
  Age: 71 Year
  Sex: Female
  Weight: 44 kg

DRUGS (1)
  1. ULTRAVIST [Suspect]
     Active Substance: IOPROMIDE
     Indication: MALIGNANT PALATE NEOPLASM
     Route: 042
     Dates: start: 20170728

REACTIONS (2)
  - Pruritus [None]
  - Contrast media reaction [None]

NARRATIVE: CASE EVENT DATE: 20170728
